FAERS Safety Report 5517434-4 (Version None)
Quarter: 2007Q4

REPORT INFORMATION
  Report Type: 
  Country: None (occurrence: None)
  Receive Date: 20071114
  Receipt Date: 20071105
  Transmission Date: 20080405
  Serious: Yes (Other)
  Sender: FDA-Public Use
  Company Number: GB-ASTRAZENECA-2007GB02244

PATIENT
  Age: 50 Year
  Sex: Female

DRUGS (2)
  1. SEROQUEL [Suspect]
     Indication: BIPOLAR DISORDER
     Route: 048
     Dates: start: 20071001
  2. SEROQUEL [Suspect]
     Route: 048

REACTIONS (3)
  - COGWHEEL RIGIDITY [None]
  - EXTRAPYRAMIDAL DISORDER [None]
  - MUSCULOSKELETAL STIFFNESS [None]
